FAERS Safety Report 24870660 (Version 1)
Quarter: 2025Q1

REPORT INFORMATION
  Report Type: Report from Study
  Country: DE (occurrence: DE)
  Receive Date: 20250121
  Receipt Date: 20250121
  Transmission Date: 20250409
  Serious: Yes (Other)
  Sender: RANBAXY
  Company Number: DE-SUN PHARMACEUTICAL INDUSTRIES LTD-2025R1-489969

PATIENT
  Age: 50 Year
  Sex: Female

DRUGS (5)
  1. PYRIDOXINE [Suspect]
     Active Substance: PYRIDOXINE
     Indication: Primary hyperoxaluria
     Route: 065
  2. SODIUM BICARBONATE [Suspect]
     Active Substance: SODIUM BICARBONATE
     Indication: Primary hyperoxaluria
     Dosage: 3 GRAM, QD
     Route: 065
  3. MYCOPHENOLIC ACID [Suspect]
     Active Substance: MYCOPHENOLIC ACID
     Indication: Primary hyperoxaluria
     Route: 065
  4. TACROLIMUS [Suspect]
     Active Substance: TACROLIMUS
     Indication: Primary hyperoxaluria
     Route: 065
  5. PREDNISONE [Suspect]
     Active Substance: PREDNISONE
     Indication: Primary hyperoxaluria
     Route: 065

REACTIONS (3)
  - Arterial stenosis [Unknown]
  - Diarrhoea [Unknown]
  - Acute kidney injury [Unknown]
